FAERS Safety Report 6674566-5 (Version None)
Quarter: 2010Q2

REPORT INFORMATION
  Report Type: 
  Country: None (occurrence: None)
  Receive Date: 20100409
  Receipt Date: 20100329
  Transmission Date: 20101027
  Serious: Yes (Death, Hospitalization)
  Sender: FDA-Public Use
  Company Number: JP-PFIZER INC-2010030776

PATIENT
  Age: 82 Year
  Sex: Male
  Weight: 57 kg

DRUGS (18)
  1. LINEZOLID [Suspect]
     Indication: SEPSIS
     Dosage: 600 MG, 1X/DAY
     Route: 042
     Dates: start: 20091019, end: 20091019
  2. LINEZOLID [Suspect]
     Dosage: 600 MG, 2X/DAY
     Route: 042
     Dates: start: 20091020
  3. CIPROFLOXACIN HCL [Suspect]
     Indication: SEPSIS
     Dosage: 300 MG, 1X/DAY
     Route: 042
     Dates: start: 20091019, end: 20091101
  4. VANCOMYCIN [Concomitant]
     Route: 042
  5. NOVOLIN R [Concomitant]
     Route: 042
  6. GLUCAGON ^NOVO^ [Concomitant]
     Route: 042
  7. MAGNESIUM SULFATE [Concomitant]
     Route: 042
     Dates: start: 20091019
  8. INOVAN [Concomitant]
     Route: 042
     Dates: start: 20091019
  9. CALCIUM CHLORIDE [Concomitant]
     Route: 042
     Dates: end: 20091102
  10. NORADRENALINE [Concomitant]
     Indication: SEPSIS
     Route: 042
     Dates: start: 20091019, end: 20091021
  11. GLUCOSE [Concomitant]
     Route: 042
  12. MOPIHEPAMIN [Concomitant]
  13. REMINARON [Concomitant]
     Route: 042
  14. STRONG NEO-MINOPHAGEN C [Concomitant]
     Route: 042
  15. ADELAVIN [Concomitant]
     Route: 042
  16. PRODIF [Concomitant]
     Route: 042
  17. NEOLAMIN MULTI [Concomitant]
     Route: 042
  18. ELEMENMIC [Concomitant]
     Route: 042

REACTIONS (3)
  - SEPSIS [None]
  - SUPERINFECTION [None]
  - THROMBOCYTOPENIA [None]
